FAERS Safety Report 7133693-9 (Version None)
Quarter: 2010Q4

REPORT INFORMATION
  Report Type: 
  Country: None (occurrence: None)
  Receive Date: 20101202
  Receipt Date: 20101119
  Transmission Date: 20110411
  Serious: Yes (Death)
  Sender: FDA-Public Use
  Company Number: DE-MYLANLABS-2010S1021560

PATIENT
  Age: 53 Year
  Sex: Female

DRUGS (6)
  1. JATROSOM [Interacting]
     Indication: SUICIDE ATTEMPT
     Route: 048
  2. FLUOXETINE [Suspect]
     Indication: DEPRESSION
     Route: 065
  3. FLUOXETINE [Suspect]
     Indication: SUICIDE ATTEMPT
     Route: 065
  4. FLUOXETINE [Suspect]
     Route: 048
  5. FLUOXETINE [Suspect]
     Route: 048
  6. SERTRALINE HYDROCHLORIDE [Interacting]
     Indication: SUICIDE ATTEMPT
     Route: 048

REACTIONS (8)
  - CARDIAC ARREST [None]
  - COMPLETED SUICIDE [None]
  - DISSEMINATED INTRAVASCULAR COAGULATION [None]
  - DRUG INTERACTION [None]
  - HYPERTHERMIA MALIGNANT [None]
  - INTENTIONAL OVERDOSE [None]
  - MULTIPLE DRUG OVERDOSE INTENTIONAL [None]
  - SEROTONIN SYNDROME [None]
